FAERS Safety Report 7699583-8 (Version None)
Quarter: 2011Q3

REPORT INFORMATION
  Report Type: 
  Country: None (occurrence: None)
  Receive Date: 20110822
  Receipt Date: 20110811
  Transmission Date: 20111222
  Serious: Yes (Hospitalization)
  Sender: FDA-Public Use
  Company Number: US-BIOGENIDEC-2011BI030897

PATIENT
  Age: 62 Year
  Sex: Female

DRUGS (1)
  1. TYSABRI [Suspect]
     Indication: MULTIPLE SCLEROSIS
     Route: 042
     Dates: start: 20090714

REACTIONS (9)
  - ASTHENIA [None]
  - POOR VENOUS ACCESS [None]
  - FATIGUE [None]
  - ABSCESS INTESTINAL [None]
  - ABDOMINAL DISCOMFORT [None]
  - AMNESIA [None]
  - HERNIA [None]
  - HYPOAESTHESIA [None]
  - HYPERTENSION [None]
